FAERS Safety Report 23083069 (Version 1)
Quarter: 2023Q4

REPORT INFORMATION
  Report Type: Spontaneous
  Country: US (occurrence: None)
  Receive Date: 20231017
  Receipt Date: 20231017
  Transmission Date: 20240109
  Serious: Yes (Hospitalization)
  Sender: FDA-Public Use
  Company Number: None

PATIENT
  Age: 67 Year
  Sex: Male

DRUGS (1)
  1. DAPTOMYCIN [Suspect]
     Active Substance: DAPTOMYCIN
     Dates: start: 20230120, end: 20230201

REACTIONS (10)
  - Culture positive [None]
  - Staphylococcal infection [None]
  - Nephropathy toxic [None]
  - Arthralgia [None]
  - Pain in extremity [None]
  - Pain [None]
  - White blood cell count increased [None]
  - Blood creatine phosphokinase increased [None]
  - Rhabdomyolysis [None]
  - Generalised oedema [None]

NARRATIVE: CASE EVENT DATE: 20230130
